FAERS Safety Report 10949979 (Version 1)
Quarter: 2015Q1

REPORT INFORMATION
  Report Type: Spontaneous
  Country: US (occurrence: None)
  Receive Date: 20150226
  Receipt Date: 20150226
  Transmission Date: 20150721
  Serious: Yes (Hospitalization)
  Sender: FDA-Public Use
  Company Number: 2014TUS002439

PATIENT
  Age: 4 Month
  Sex: Male
  Weight: 7.3 kg

DRUGS (1)
  1. PREVACID [Suspect]
     Active Substance: LANSOPRAZOLE
     Indication: GASTROOESOPHAGEAL REFLUX DISEASE
     Route: 048
     Dates: start: 20140315, end: 20140330

REACTIONS (4)
  - Condition aggravated [None]
  - Haematemesis [None]
  - Diarrhoea haemorrhagic [None]
  - Food allergy [None]

NARRATIVE: CASE EVENT DATE: 20140329
